FAERS Safety Report 21605388 (Version 4)
Quarter: 2023Q1

REPORT INFORMATION
  Report Type: Spontaneous
  Country: DE (occurrence: None)
  Receive Date: 20221116
  Receipt Date: 20230315
  Transmission Date: 20230417
  Serious: Yes (Other)
  Sender: FDA-Public Use
  Company Number: DE-ROCHE-3215691

PATIENT
  Age: 53 Year
  Sex: Male

DRUGS (3)
  1. OCREVUS [Suspect]
     Active Substance: OCRELIZUMAB
     Indication: Primary progressive multiple sclerosis
     Dosage: ONCE IN 6 MONTHS- FIRST, SECOND, THIRD, FOURTH, FIFTH, 8TH ADMINISTRATION
     Route: 065
     Dates: start: 201806
  2. CORTISONE [Concomitant]
     Active Substance: CORTISONE
  3. ERGOCALCIFEROL [Concomitant]
     Active Substance: ERGOCALCIFEROL

REACTIONS (9)
  - Multiple sclerosis [Not Recovered/Not Resolved]
  - Disability [Unknown]
  - Asthenia [Recovering/Resolving]
  - Gait disturbance [Not Recovered/Not Resolved]
  - Paraesthesia [Unknown]
  - Drug ineffective [Unknown]
  - Muscular weakness [Unknown]
  - Atonic urinary bladder [Unknown]
  - Defaecation disorder [Unknown]
